FAERS Safety Report 20372144 (Version 1)
Quarter: 2022Q1

REPORT INFORMATION
  Report Type: Spontaneous
  Country: ES (occurrence: ES)
  Receive Date: 20220124
  Receipt Date: 20220124
  Transmission Date: 20220424
  Serious: Yes (Hospitalization)
  Sender: FDA-Public Use
  Company Number: None

PATIENT
  Age: 30 Year
  Sex: Female

DRUGS (1)
  1. IMRALDI [Suspect]
     Active Substance: ADALIMUMAB
     Indication: Product used for unknown indication
     Dosage: 1 PRE-FILLED SYRINGE OF 0.8 ML
     Route: 065
     Dates: start: 20210225, end: 20210422

REACTIONS (3)
  - Vertigo [Unknown]
  - Pyrexia [Unknown]
  - Myalgia [Unknown]

NARRATIVE: CASE EVENT DATE: 20210410
